FAERS Safety Report 17942929 (Version 1)
Quarter: 2020Q2

REPORT INFORMATION
  Report Type: Spontaneous
  Country: US (occurrence: US)
  Receive Date: 20200625
  Receipt Date: 20200625
  Transmission Date: 20200714
  Serious: No
  Sender: FDA-Public Use
  Company Number: US-AKRON, INC.-2086667

PATIENT
  Age: 39 Year
  Sex: Female

DRUGS (1)
  1. FENTANYL CITRATE INJECTION CII [Suspect]
     Active Substance: FENTANYL CITRATE

REACTIONS (1)
  - Drug ineffective [Unknown]
